FAERS Safety Report 14234834 (Version 1)
Quarter: 2017Q4

REPORT INFORMATION
  Report Type: Spontaneous
  Country: US (occurrence: None)
  Receive Date: 20171129
  Receipt Date: 20171129
  Transmission Date: 20180321
  Serious: Yes (Hospitalization)
  Sender: FDA-Public Use
  Company Number: None

PATIENT
  Age: 70 Year
  Sex: Female
  Weight: 95.25 kg

DRUGS (24)
  1. SALINE NASAL SPRAY [Concomitant]
     Active Substance: SODIUM CHLORIDE
  2. ACCOLATE [Concomitant]
     Active Substance: ZAFIRLUKAST
  3. LEVOTHYROXINE. [Concomitant]
     Active Substance: LEVOTHYROXINE
  4. LISINOPRIL. [Concomitant]
     Active Substance: LISINOPRIL
  5. SUDAFED [Concomitant]
     Active Substance: PSEUDOEPHEDRINE HYDROCHLORIDE
  6. FUROSEMIDE. [Concomitant]
     Active Substance: FUROSEMIDE
  7. VITAMIN D3 [Concomitant]
     Active Substance: CHOLECALCIFEROL
  8. FERROUS SULFATE. [Concomitant]
     Active Substance: FERROUS SULFATE
  9. PRAVASTATIN. [Concomitant]
     Active Substance: PRAVASTATIN
  10. DEXLIANT [Concomitant]
  11. NIACIN. [Concomitant]
     Active Substance: NIACIN
  12. ALLEGRA [Concomitant]
     Active Substance: FEXOFENADINE HYDROCHLORIDE
  13. PREDNISONE. [Concomitant]
     Active Substance: PREDNISONE
  14. CYCLOBENZAPRINE. [Concomitant]
     Active Substance: CYCLOBENZAPRINE
  15. VITAMIN B COMPLEX [Concomitant]
     Active Substance: CYANOCOBALAMIN\DEXPANTHENOL\NIACINAMIDE\PYRIDOXINE HYDROCHLORIDE\RIBOFLAVIN 5^-PHOSPHATE SODIUM\THIAMINE HYDROCHLORIDE\VITAMIN B COMPLEX
  16. CALCIUM/VITAMIN D [Concomitant]
     Active Substance: CALCIUM\VITAMIN D
  17. MAGNESIUM OXIDE. [Concomitant]
     Active Substance: MAGNESIUM OXIDE
  18. GAMMAPLEX [Suspect]
     Active Substance: HUMAN IMMUNOGLOBULIN G
     Indication: IMMUNODEFICIENCY COMMON VARIABLE
     Dosage: 100 GRAMS (2000ML) EVERY 2 WEEKS INTRAVENOUS
     Route: 042
     Dates: start: 20170510, end: 20170705
  19. CELECOXIB. [Concomitant]
     Active Substance: CELECOXIB
  20. MUCINEX DM [Concomitant]
     Active Substance: DEXTROMETHORPHAN HYDROBROMIDE\GUAIFENESIN
  21. TRAMADOL. [Concomitant]
     Active Substance: TRAMADOL
  22. DEXAMETHASONE. [Concomitant]
     Active Substance: DEXAMETHASONE
  23. METOPROLOL. [Concomitant]
     Active Substance: METOPROLOL
  24. PROTONIX [Concomitant]
     Active Substance: PANTOPRAZOLE SODIUM

REACTIONS (6)
  - Thrombosis [None]
  - Deep vein thrombosis [None]
  - Anxiety [None]
  - Dyspnoea [None]
  - Atrial thrombosis [None]
  - Pulmonary thrombosis [None]

NARRATIVE: CASE EVENT DATE: 20170716
